FAERS Safety Report 16309999 (Version 1)
Quarter: 2019Q2

REPORT INFORMATION
  Report Type: Spontaneous
  Country: US (occurrence: US)
  Receive Date: 20190514
  Receipt Date: 20190514
  Transmission Date: 20190711
  Serious: Yes (Other)
  Sender: FDA-Public Use
  Company Number: US-AKORN PHARMACEUTICALS-2019AKN00896

PATIENT
  Sex: Male
  Weight: 81.63 kg

DRUGS (2)
  1. MUPIROCIN. [Concomitant]
     Active Substance: MUPIROCIN
     Dosage: UNK, AS NEEDED
  2. MYORISAN [Suspect]
     Active Substance: ISOTRETINOIN
     Indication: ACNE
     Dosage: 40 MG, 2X/DAY
     Dates: start: 20190110, end: 20190419

REACTIONS (4)
  - Chest pain [Recovered/Resolved]
  - Depression [Recovered/Resolved]
  - Abdominal pain upper [Recovered/Resolved]
  - Mood altered [Recovered/Resolved]

NARRATIVE: CASE EVENT DATE: 2019
